FAERS Safety Report 10379848 (Version 2)
Quarter: 2014Q3

REPORT INFORMATION
  Report Type: Spontaneous
  Country: US (occurrence: US)
  Receive Date: 20140812
  Receipt Date: 20140812
  Transmission Date: 20150326
  Serious: Yes (Hospitalization, Other)
  Sender: FDA-Public Use
  Company Number: US-009507513-2011SP035860

PATIENT
  Sex: Female
  Weight: 116.58 kg

DRUGS (1)
  1. NUVARING [Suspect]
     Active Substance: ETHINYL ESTRADIOL\ETONOGESTREL
     Indication: CONTRACEPTION
     Dates: start: 20100724, end: 201008

REACTIONS (8)
  - Cholelithiasis [Unknown]
  - Pulmonary embolism [Unknown]
  - Deep vein thrombosis [Unknown]
  - Gallbladder cholesterolosis [Unknown]
  - Leukocytosis [Unknown]
  - Cholecystitis chronic [Unknown]
  - Hypercoagulation [Not Recovered/Not Resolved]
  - Antiphospholipid antibodies [Unknown]

NARRATIVE: CASE EVENT DATE: 201008
